FAERS Safety Report 8544531-1 (Version None)
Quarter: 2012Q3

REPORT INFORMATION
  Report Type: 
  Country: None (occurrence: None)
  Receive Date: 20120727
  Receipt Date: 20120724
  Transmission Date: 20120928
  Serious: No
  Sender: FDA-Public Use
  Company Number: US-PFIZER INC-2012159744

PATIENT
  Sex: Female
  Weight: 61.224 kg

DRUGS (3)
  1. PREMARIN [Suspect]
     Indication: ATROPHIC VULVOVAGINITIS
     Dosage: UNK, 2X/WEEK AT BED TIME
     Route: 067
     Dates: start: 20120606, end: 20120626
  2. PREMARIN [Suspect]
     Indication: MENOPAUSAL SYMPTOMS
  3. XANAX [Concomitant]
     Indication: INSOMNIA
     Dosage: UNK, AT BED TIME

REACTIONS (1)
  - VAGINAL ODOUR [None]
